FAERS Safety Report 17653741 (Version 3)
Quarter: 2020Q3

REPORT INFORMATION
  Report Type: Spontaneous
  Country: US (occurrence: US)
  Receive Date: 20200410
  Receipt Date: 20200816
  Transmission Date: 20201102
  Serious: No
  Sender: FDA-Public Use
  Company Number: US-SA-2020SA089849

PATIENT

DRUGS (9)
  1. METHOTREXATE. [Concomitant]
     Active Substance: METHOTREXATE
  2. HYDROXYZINE HYDROCHLORIDE. [Concomitant]
     Active Substance: HYDROXYZINE HYDROCHLORIDE
  3. DUPIXENT [Suspect]
     Active Substance: DUPILUMAB
     Dosage: 300 MG, QOW
     Route: 058
     Dates: start: 2020
  4. CLINDAMYCIN. [Concomitant]
     Active Substance: CLINDAMYCIN
     Dosage: UNK
     Route: 065
  5. DUPIXENT [Suspect]
     Active Substance: DUPILUMAB
     Indication: DERMATITIS
     Dosage: 600 MG, 1X
     Route: 058
     Dates: start: 20200324, end: 20200324
  6. TRIAMCINOLONE [Concomitant]
     Active Substance: TRIAMCINOLONE
     Route: 065
  7. FOLIC ACID. [Concomitant]
     Active Substance: FOLIC ACID
  8. PREDNISONE. [Concomitant]
     Active Substance: PREDNISONE
     Route: 065
  9. EUCRISA [Concomitant]
     Active Substance: CRISABOROLE
     Dosage: UNK
     Route: 065

REACTIONS (6)
  - Fatigue [Not Recovered/Not Resolved]
  - Lip dry [Not Recovered/Not Resolved]
  - Dermatitis [Not Recovered/Not Resolved]
  - Headache [Not Recovered/Not Resolved]
  - Chapped lips [Not Recovered/Not Resolved]
  - Rash [Not Recovered/Not Resolved]

NARRATIVE: CASE EVENT DATE: 2020
